FAERS Safety Report 26014610 (Version 1)
Quarter: 2025Q4

REPORT INFORMATION
  Report Type: Spontaneous
  Country: EU (occurrence: EU)
  Receive Date: 20251108
  Receipt Date: 20251108
  Transmission Date: 20260118
  Serious: Yes (Hospitalization)
  Sender: ACCORD
  Company Number: EU-Accord-510851

PATIENT
  Age: 65 Year
  Sex: Female
  Weight: 64 kg

DRUGS (8)
  1. CISPLATIN [Suspect]
     Active Substance: CISPLATIN
     Indication: Product used for unknown indication
     Dosage: Q3W
     Dates: start: 20250403, end: 20251016
  2. GEMCITABINE [Suspect]
     Active Substance: GEMCITABINE
     Indication: Product used for unknown indication
     Dosage: Q3W
     Dates: start: 20250403, end: 20251016
  3. DURVALUMAB [Concomitant]
     Active Substance: DURVALUMAB
     Indication: Product used for unknown indication
     Dosage: Q3W
     Dates: start: 20250327, end: 20251016
  4. MOVICOL [Concomitant]
     Active Substance: POLYETHYLENE GLYCOL 3350\POTASSIUM CHLORIDE\SODIUM BICARBONATE\SODIUM CHLORIDE
     Dosage: 1 X DIE, STARTED PRIOR TO STUDY
  5. MIRTAZAPINE [Concomitant]
     Active Substance: MIRTAZAPINE
     Dosage: 30 MG SID, STARTED PRIOR TO STUDY
  6. OLMESARTAN [Concomitant]
     Active Substance: OLMESARTAN
     Dosage: 10 MG SID, STARTED PRIOR TO STUDY
  7. ALPRAZOLAM [Concomitant]
     Active Substance: ALPRAZOLAM
     Dosage: 0.5MG, STARTED PRIOR TO STUDY
  8. PALIPERIDONE [Concomitant]
     Active Substance: PALIPERIDONE
     Dosage: 3MG, STARTED PRIOR TO STUDY

REACTIONS (1)
  - Pyrexia [Recovering/Resolving]

NARRATIVE: CASE EVENT DATE: 20251021
